FAERS Safety Report 14162430 (Version 1)
Quarter: 2017Q4

REPORT INFORMATION
  Report Type: Spontaneous
  Country: CN (occurrence: CN)
  Receive Date: 20171106
  Receipt Date: 20171106
  Transmission Date: 20180321
  Serious: Yes (Hospitalization, Other)
  Sender: FDA-Public Use
  Company Number: CN-PFIZER INC-2017473573

PATIENT
  Age: 86 Year
  Sex: Male

DRUGS (1)
  1. LIPITOR [Suspect]
     Active Substance: ATORVASTATIN CALCIUM
     Indication: HYPERLIPIDAEMIA
     Dosage: 20 MG, 1X/DAY
     Route: 048
     Dates: start: 20170114

REACTIONS (3)
  - Transaminases increased [Not Recovered/Not Resolved]
  - Haematochezia [Unknown]
  - Blood pressure decreased [Unknown]

NARRATIVE: CASE EVENT DATE: 20170120
